APPROVED DRUG PRODUCT: ASTELIN
Active Ingredient: AZELASTINE HYDROCHLORIDE
Strength: 0.137MG/SPRAY **Federal Register determination that product was not discontinued or withdrawn for safety or effectiveness reasons**
Dosage Form/Route: SPRAY, METERED;NASAL
Application: N020114 | Product #001
Applicant: RISING PHARMA HOLDINGS INC
Approved: Nov 1, 1996 | RLD: Yes | RS: No | Type: DISCN